FAERS Safety Report 4509154-X (Version None)
Quarter: 2004Q4

REPORT INFORMATION
  Report Type: 
  Country: None (occurrence: None)
  Receive Date: 20041025
  Receipt Date: 20040806
  Transmission Date: 20050328
  Serious: Yes (Hospitalization)
  Sender: FDA-Public Use
  Company Number: US-JNJFOC-20040802599

PATIENT
  Age: 64 Year
  Sex: Female
  Weight: 45 kg

DRUGS (6)
  1. REMICADE [Suspect]
     Indication: CROHN'S DISEASE
     Dosage: DOSE GIVEN AROUND EIGHT WEEKS AGO.
  2. MIACALCIN [Concomitant]
  3. ASPIRIN [Concomitant]
  4. ASPIRIN [Concomitant]
  5. EVISTA [Concomitant]
  6. MULTIVITAMIN (MULTIVITAMINS) [Concomitant]

REACTIONS (1)
  - CHOLELITHIASIS [None]
